FAERS Safety Report 6695707-X (Version None)
Quarter: 2010Q2

REPORT INFORMATION
  Report Type: 
  Country: None (occurrence: None)
  Receive Date: 20100426
  Receipt Date: 20100412
  Transmission Date: 20101027
  Serious: Yes (Other)
  Sender: FDA-Public Use
  Company Number: US-ASTRAZENECA-2009UW15689

PATIENT
  Age: 526 Month
  Sex: Male
  Weight: 98 kg

DRUGS (3)
  1. SEROQUEL [Suspect]
     Route: 048
  2. NORVASC [Concomitant]
     Dates: start: 20030601
  3. LISINOPRIL [Concomitant]
     Dates: start: 20070401

REACTIONS (2)
  - DIABETES MELLITUS [None]
  - DIABETIC NEUROPATHY [None]
